FAERS Safety Report 14793868 (Version 1)
Quarter: 2018Q2

REPORT INFORMATION
  Report Type: Spontaneous
  Country: US (occurrence: US)
  Receive Date: 20180423
  Receipt Date: 20180423
  Transmission Date: 20180711
  Serious: No
  Sender: FDA-Public Use
  Company Number: US-GLAXOSMITHKLINE-US2018068941

PATIENT
  Age: 51 Year
  Sex: Female

DRUGS (9)
  1. IMURAN [Concomitant]
     Active Substance: AZATHIOPRINE
  2. LYRICA [Concomitant]
     Active Substance: PREGABALIN
  3. METHOTREXATE. [Concomitant]
     Active Substance: METHOTREXATE
  4. PLAQUENIL [Concomitant]
     Active Substance: HYDROXYCHLOROQUINE SULFATE
  5. PRAVASTATIN. [Concomitant]
     Active Substance: PRAVASTATIN
  6. PREDNISONE. [Concomitant]
     Active Substance: PREDNISONE
  7. XARELTO [Concomitant]
     Active Substance: RIVAROXABAN
  8. LOSARTAN. [Concomitant]
     Active Substance: LOSARTAN
  9. BENLYSTA [Suspect]
     Active Substance: BELIMUMAB
     Route: 042

REACTIONS (2)
  - Skin lesion [Unknown]
  - Pyrexia [Unknown]

NARRATIVE: CASE EVENT DATE: 201706
